FAERS Safety Report 8344184 (Version 6)
Quarter: 2012Q4

REPORT INFORMATION
  Report Type: 
  Country: US (occurrence: US)
  Receive Date: 20120119
  Receipt Date: 20120906
  Transmission Date: 20130627
  Serious: Yes (Hospitalization)
  Sender: FDA-Public Use
  Company Number: US-ACTELION-A-NJ2012-59573

PATIENT
  Age: 45 Year
  Sex: Female

DRUGS (12)
  1. TRACLEER [Suspect]
     Indication: PULMONARY ARTERIAL HYPERTENSION
     Dosage: 125 mg, bid
     Route: 048
  2. SILDENAFIL [Concomitant]
  3. REMODULIN [Concomitant]
  4. WARFARIN [Concomitant]
  5. BUMEX [Concomitant]
  6. SPIRONOLACTONE [Concomitant]
  7. DIGOXIN [Concomitant]
  8. POTASSIUM CHLORIDE [Concomitant]
  9. LEVOTHYROXINE [Concomitant]
  10. SPIRIVA [Concomitant]
  11. ABILIFY [Concomitant]
  12. FLUOXETINE [Concomitant]

REACTIONS (14)
  - Infusion site infection [Recovered/Resolved]
  - Sepsis [Recovered/Resolved]
  - Iron deficiency anaemia [Recovered/Resolved]
  - Packed red blood cell transfusion [Recovered/Resolved]
  - Headache [Recovered/Resolved]
  - Device damage [Unknown]
  - Device related infection [Recovered/Resolved]
  - Staphylococcal bacteraemia [Recovered/Resolved]
  - Klebsiella bacteraemia [Recovered/Resolved]
  - Pyrexia [Recovered/Resolved]
  - Pleural effusion [Recovered/Resolved]
  - Hypoxia [Recovered/Resolved]
  - Chest discomfort [Recovered/Resolved]
  - Atelectasis [Recovered/Resolved]
